FAERS Safety Report 17327163 (Version 1)
Quarter: 2020Q1

REPORT INFORMATION
  Report Type: Spontaneous
  Country: US (occurrence: US)
  Receive Date: 20200127
  Receipt Date: 20200127
  Transmission Date: 20200409
  Serious: No
  Sender: FDA-Public Use
  Company Number: US-ASTRAZENECA-2020SE08890

PATIENT
  Sex: Female
  Weight: 3.8 kg

DRUGS (1)
  1. SYNAGIS [Suspect]
     Active Substance: PALIVIZUMAB
     Indication: LARYNGOMALACIA
     Dosage: 50 MG/0.5ML- 15 MG/KG MONTHLY
     Route: 030
     Dates: start: 20191122

REACTIONS (1)
  - Weight decreased [Unknown]
